FAERS Safety Report 17192534 (Version 1)
Quarter: 2019Q4

REPORT INFORMATION
  Report Type: Report from Study
  Country: US (occurrence: US)
  Receive Date: 20191223
  Receipt Date: 20191223
  Transmission Date: 20200122
  Serious: Yes (Hospitalization, Other)
  Sender: FDA-Public Use
  Company Number: US-UCBSA-2019039638

PATIENT
  Age: 84 Year
  Sex: Female
  Weight: 61 kg

DRUGS (22)
  1. MIRAPEX [Suspect]
     Active Substance: PRAMIPEXOLE DIHYDROCHLORIDE
     Dosage: 1-2 TABLET, 2X/DAY (BID)
     Route: 048
  2. SINEMET [Suspect]
     Active Substance: CARBIDOPA\LEVODOPA
     Dosage: 0.5 DOSAGE FORM, 4X/DAY (QID) (10/100MG)
  3. ZOLOFT [Concomitant]
     Active Substance: SERTRALINE HYDROCHLORIDE
     Indication: ANXIETY
  4. MINERAL OIL. [Concomitant]
     Active Substance: MINERAL OIL
     Indication: APPLICATION SITE PRURITUS
  5. REQUIP [Suspect]
     Active Substance: ROPINIROLE HYDROCHLORIDE
     Dosage: 0.5 DOSAGE FORM, 3X/DAY (TID)
     Route: 048
  6. VANCOMYCINE [VANCOMYCIN] [Concomitant]
     Active Substance: VANCOMYCIN
     Indication: GASTROINTESTINAL INFECTION
     Dosage: UNK
  7. ASA [Concomitant]
     Active Substance: ASPIRIN
     Indication: MIGRAINE
     Dosage: UNK
  8. GEODON [ZIPRASIDONE HYDROCHLORIDE] [Concomitant]
     Indication: TREMOR
     Dosage: UNK
  9. REQUIP [Suspect]
     Active Substance: ROPINIROLE HYDROCHLORIDE
     Indication: TREMOR
     Dosage: 0.25 MILLIGRAM, 3X/DAY (TID)
     Route: 048
  10. PREDNISONE. [Concomitant]
     Active Substance: PREDNISONE
     Indication: PRODUCT USED FOR UNKNOWN INDICATION
     Dosage: 50 MILLIGRAM, ONCE DAILY (QD)
  11. ZOLOFT [Concomitant]
     Active Substance: SERTRALINE HYDROCHLORIDE
     Indication: DEPRESSION
     Dosage: 25 MILLIGRAM, ONCE DAILY (QD)
     Route: 048
  12. MIRAPEX [Concomitant]
     Active Substance: PRAMIPEXOLE DIHYDROCHLORIDE
     Indication: PRODUCT USED FOR UNKNOWN INDICATION
     Dosage: TABLET,EXTENDED RELEASE
     Route: 048
  13. ROTIGOTINE [Suspect]
     Active Substance: ROTIGOTINE
     Indication: RESTLESS LEGS SYNDROME
     Dosage: 4 MG IN THE MORNING AND 4 MG IN THE EVENING, 2X/DAY (BID)
     Route: 062
     Dates: start: 201805
  14. REQUIP [Suspect]
     Active Substance: ROPINIROLE HYDROCHLORIDE
     Dosage: 1-2 TABLET (0.25MG), 3X/DAY (TID)
     Route: 048
  15. MIRAPEX [Suspect]
     Active Substance: PRAMIPEXOLE DIHYDROCHLORIDE
     Indication: PRODUCT USED FOR UNKNOWN INDICATION
     Dosage: 0.125 MILLIGRAM, 3X/DAY (TID)
     Route: 048
  16. VITAMIN B12 [Concomitant]
     Active Substance: CYANOCOBALAMIN
     Indication: PRODUCT USED FOR UNKNOWN INDICATION
     Dosage: 2000 MICROGRAM, ONCE DAILY (QD)
  17. EUCERIN [SOFT SOAP] [Concomitant]
     Indication: APPLICATION SITE PRURITUS
  18. MORPHINE [Concomitant]
     Active Substance: MORPHINE
     Indication: PRODUCT USED FOR UNKNOWN INDICATION
     Dosage: UNK
  19. METOPROLOL. [Concomitant]
     Active Substance: METOPROLOL
     Indication: PRODUCT USED FOR UNKNOWN INDICATION
     Dosage: UNK
  20. SINEMET [Suspect]
     Active Substance: CARBIDOPA\LEVODOPA
     Indication: PRODUCT USED FOR UNKNOWN INDICATION
     Dosage: 0.5 DOSAGE FORM, 3X/DAY (TID) (25/100MG)
  21. MINERAL OIL. [Concomitant]
     Active Substance: MINERAL OIL
     Indication: APPLICATION SITE ERYTHEMA
     Dosage: UNK
  22. EUCERIN [SOFT SOAP] [Concomitant]
     Indication: APPLICATION SITE ERYTHEMA
     Dosage: UNK

REACTIONS (23)
  - Road traffic accident [Unknown]
  - Neck pain [Unknown]
  - Anxiety [Unknown]
  - Somnolence [Unknown]
  - Off label use [Unknown]
  - Rheumatoid arthritis [Unknown]
  - Loss of consciousness [Unknown]
  - Gastrointestinal infection [Not Recovered/Not Resolved]
  - Rib fracture [Unknown]
  - Application site erythema [Unknown]
  - Spinal osteoarthritis [Unknown]
  - Dizziness [Unknown]
  - Intentional overdose [Unknown]
  - Upper limb fracture [Unknown]
  - Restlessness [Unknown]
  - Sternal fracture [Unknown]
  - Head injury [Unknown]
  - Parkinson^s disease [Unknown]
  - Depression [Unknown]
  - Bursitis [Unknown]
  - Application site pruritus [Unknown]
  - Migraine [Unknown]
  - Agitation [Unknown]

NARRATIVE: CASE EVENT DATE: 2018
